FAERS Safety Report 12145664 (Version 1)
Quarter: 2016Q1

REPORT INFORMATION
  Report Type: Spontaneous
  Country: US (occurrence: None)
  Receive Date: 20160303
  Receipt Date: 20160303
  Transmission Date: 20160526
  Serious: Yes (Hospitalization)
  Sender: FDA-Public Use
  Company Number: None

PATIENT
  Age: 71 Year
  Sex: Male
  Weight: 109 kg

DRUGS (13)
  1. CYCLOPHOSPHAMIDE 59 MG [Suspect]
     Active Substance: CYCLOPHOSPHAMIDE
     Indication: PLASMA CELL MYELOMA
     Dosage: 1 PILL QD ORAL
     Route: 048
     Dates: start: 20151120, end: 20160301
  2. NORVASC [Concomitant]
     Active Substance: AMLODIPINE BESYLATE
  3. TYLENOL [Concomitant]
     Active Substance: ACETAMINOPHEN
  4. CHLORPROMAZINE (THORAZINE) [Concomitant]
  5. RIVAROXABAN (XARELTO) [Concomitant]
  6. FOLIC ACID (CENTRUM COMPLETE ORAL) [Concomitant]
  7. LIPITOR [Concomitant]
     Active Substance: ATORVASTATIN CALCIUM
  8. MULTIVITAMIN [Concomitant]
     Active Substance: VITAMINS
  9. IRON [Concomitant]
     Active Substance: IRON
  10. POMALIDOMIDE 4 MG CELGENE [Suspect]
     Active Substance: POMALIDOMIDE
     Indication: PLASMA CELL MYELOMA
     Dosage: 1 PILL QD ORAL
     Route: 048
     Dates: start: 20151120, end: 20160301
  11. OMEPRAZOLE (PRILOSEC) [Concomitant]
  12. METOPROLOL SUCCINATE XL (TOPROL XL) [Concomitant]
  13. DECADRON [Concomitant]
     Active Substance: DEXAMETHASONE

REACTIONS (1)
  - Influenza [None]

NARRATIVE: CASE EVENT DATE: 20160301
